FAERS Safety Report 24275543 (Version 1)
Quarter: 2024Q3

REPORT INFORMATION
  Report Type: Spontaneous
  Country: FR (occurrence: FR)
  Receive Date: 20240903
  Receipt Date: 20240903
  Transmission Date: 20241017
  Serious: Yes (Hospitalization)
  Sender: AUROBINDO
  Company Number: FR-AFSSAPS-TO2024001443

PATIENT
  Age: 76 Year
  Sex: Male
  Weight: 71 kg

DRUGS (2)
  1. ATORVASTATIN [Interacting]
     Active Substance: ATORVASTATIN
     Indication: Prophylaxis
     Dosage: 40 MILLIGRAM, ONCE A DAY
     Route: 048
     Dates: start: 20240709
  2. FLUINDIONE [Interacting]
     Active Substance: FLUINDIONE
     Indication: Thrombosis prophylaxis
     Dosage: 25 MILLIGRAM, ONCE A DAY
     Route: 048

REACTIONS (1)
  - International normalised ratio increased [Not Recovered/Not Resolved]

NARRATIVE: CASE EVENT DATE: 20240712
